FAERS Safety Report 5064687-5 (Version None)
Quarter: 2006Q3

REPORT INFORMATION
  Report Type: 
  Country: None (occurrence: None)
  Receive Date: 20060728
  Receipt Date: 20051201
  Transmission Date: 20061208
  Serious: Yes (Hospitalization)
  Sender: FDA-Public Use
  Company Number: JP-JPN-A20052949

PATIENT
  Age: 73 Year
  Sex: Male
  Weight: 60 kg

DRUGS (6)
  1. PAXIL [Suspect]
     Indication: DEPRESSION
     Dosage: 20MG TWICE PER DAY
     Route: 048
     Dates: start: 20050519, end: 20050630
  2. DOGMATYL [Concomitant]
     Indication: DEPRESSION
     Dosage: 150MG PER DAY
     Route: 048
     Dates: start: 20050519
  3. TETRAMIDE [Concomitant]
     Indication: DEPRESSION
     Dosage: 20MG PER DAY
     Route: 048
     Dates: start: 20050705
  4. ALPRAZOLAM [Concomitant]
     Indication: DEPRESSION
     Dosage: .8MG PER DAY
     Route: 048
     Dates: end: 20050602
  5. ARICEPT [Concomitant]
     Indication: VASCULAR DEMENTIA
     Dosage: 3MG PER DAY
     Route: 048
     Dates: start: 20050612, end: 20050618
  6. SERENAL [Concomitant]
     Indication: DELIRIUM
     Dosage: 1MG PER DAY
     Route: 048
     Dates: start: 20050630, end: 20050910

REACTIONS (15)
  - AGITATION [None]
  - BLOOD CREATINE PHOSPHOKINASE INCREASED [None]
  - CONFUSIONAL STATE [None]
  - COORDINATION ABNORMAL [None]
  - DELIRIUM [None]
  - DELUSIONAL DISORDER, PERSECUTORY TYPE [None]
  - DIARRHOEA [None]
  - DISORIENTATION [None]
  - DRUG WITHDRAWAL SYNDROME [None]
  - EMOTIONAL DISORDER [None]
  - HYPERHIDROSIS [None]
  - MYOCLONUS [None]
  - PYREXIA [None]
  - RESTLESSNESS [None]
  - TACHYCARDIA [None]
